FAERS Safety Report 20690258 (Version 8)
Quarter: 2022Q4

REPORT INFORMATION
  Report Type: Report from Study
  Country: US (occurrence: US)
  Receive Date: 20220408
  Receipt Date: 20221109
  Transmission Date: 20230113
  Serious: Yes (Hospitalization, Other)
  Sender: FDA-Public Use
  Company Number: US-NOVARTISTESTPH-NVSC2022US080241

PATIENT
  Age: 71 Year
  Sex: Male

DRUGS (3)
  1. KESIMPTA [Suspect]
     Active Substance: OFATUMUMAB
     Indication: Product used for unknown indication
     Dosage: UNK
     Route: 065
  2. KESIMPTA [Suspect]
     Active Substance: OFATUMUMAB
     Dosage: UNK
     Route: 065
  3. KESIMPTA [Suspect]
     Active Substance: OFATUMUMAB
     Dosage: UNK
     Route: 065

REACTIONS (20)
  - Fall [Unknown]
  - Poor quality sleep [Unknown]
  - Urinary retention [Unknown]
  - Bladder disorder [Unknown]
  - Renal disorder [Unknown]
  - Fatigue [Unknown]
  - Lethargy [Unknown]
  - Depression [Unknown]
  - Urinary tract infection [Unknown]
  - Choking [Unknown]
  - Pulmonary embolism [Unknown]
  - Memory impairment [Unknown]
  - Confusional state [Unknown]
  - Dizziness [Unknown]
  - Hyperhidrosis [Unknown]
  - COVID-19 [Unknown]
  - Joint swelling [Unknown]
  - Hypophagia [Unknown]
  - Mobility decreased [Unknown]
  - Gait inability [Unknown]

NARRATIVE: CASE EVENT DATE: 20220529
